FAERS Safety Report 9839584 (Version 5)
Quarter: 2015Q2

REPORT INFORMATION
  Report Type: Report from Study
  Country: CA (occurrence: CA)
  Receive Date: 20140124
  Receipt Date: 20150601
  Transmission Date: 20150821
  Serious: Yes (Hospitalization, Other)
  Sender: FDA-Public Use
  Company Number: CA-ROCHE-1229345

PATIENT
  Age: 67 Year
  Sex: Female
  Weight: 63.5 kg

DRUGS (18)
  1. RITUXAN [Suspect]
     Active Substance: RITUXIMAB
     Indication: RHEUMATOID ARTHRITIS
     Dosage: LAST DOSE 06/NOV/2014
     Route: 042
     Dates: start: 20130523
  2. SYNTHROID [Concomitant]
     Active Substance: LEVOTHYROXINE SODIUM
  3. KRILL OIL [Concomitant]
     Active Substance: DIETARY SUPPLEMENT
  4. MAGNESIUM GLYCINATE [Concomitant]
     Active Substance: MAGNESIUM GLYCINATE
  5. ARAVA [Concomitant]
     Active Substance: LEFLUNOMIDE
  6. ACTONEL [Concomitant]
     Active Substance: RISEDRONATE SODIUM
  7. PREMARIN [Concomitant]
     Active Substance: ESTROGENS, CONJUGATED
  8. IMOVANE [Concomitant]
     Active Substance: ZOPICLONE
  9. PLAQUENIL [Concomitant]
     Active Substance: HYDROXYCHLOROQUINE SULFATE
  10. DICLOFENAC [Concomitant]
     Active Substance: DICLOFENAC
  11. DIPHENHYDRAMINE [Concomitant]
     Active Substance: DIPHENHYDRAMINE
     Route: 048
     Dates: start: 20130523
  12. RITUXAN [Suspect]
     Active Substance: RITUXIMAB
     Dosage: DAY 1 AND DAY 15
     Route: 042
     Dates: start: 20140210
  13. ACETAMINOPHEN. [Concomitant]
     Active Substance: ACETAMINOPHEN
     Route: 048
     Dates: start: 20130523
  14. METHYLPREDNISOLON [Concomitant]
     Active Substance: METHYLPREDNISOLONE
     Route: 042
     Dates: start: 20130523
  15. PREDNISONE. [Concomitant]
     Active Substance: PREDNISONE
  16. CYMBALTA [Concomitant]
     Active Substance: DULOXETINE HYDROCHLORIDE
  17. LEFLUNOMIDE. [Concomitant]
     Active Substance: LEFLUNOMIDE
  18. HYDROMORPHONE [Concomitant]
     Active Substance: HYDROMORPHONE

REACTIONS (14)
  - Osteoarthritis [Recovering/Resolving]
  - Rheumatoid arthritis [Unknown]
  - Fall [Unknown]
  - Rib fracture [Unknown]
  - Infusion related reaction [Recovered/Resolved]
  - Bone fragmentation [Unknown]
  - Arthritis [Unknown]
  - Hypertonic bladder [Unknown]
  - Infusion related reaction [Recovered/Resolved]
  - Pain [Unknown]
  - Spinal disorder [Not Recovered/Not Resolved]
  - Pubis fracture [Unknown]
  - Off label use [Unknown]
  - Gastric disorder [Recovered/Resolved]

NARRATIVE: CASE EVENT DATE: 20130523
